FAERS Safety Report 17499168 (Version 1)
Quarter: 2020Q1

REPORT INFORMATION
  Report Type: Spontaneous
  Country: US (occurrence: US)
  Receive Date: 20200305
  Receipt Date: 20200305
  Transmission Date: 20200409
  Serious: Yes (Death, Hospitalization)
  Sender: FDA-Public Use
  Company Number: US-TEVA-2020-US-1193390

PATIENT
  Age: 21 Year
  Sex: Female

DRUGS (4)
  1. SODIUM FLUORIDE. [Suspect]
     Active Substance: SODIUM FLUORIDE
     Dosage: INGESTED 226G SODIUM FLUORIDE POWDER
     Route: 048
  2. MAGNESIUM [Suspect]
     Active Substance: MAGNESIUM
     Route: 065
  3. CALCIUM [Suspect]
     Active Substance: CALCIUM
     Route: 065
  4. EPINEPHRINE. [Suspect]
     Active Substance: EPINEPHRINE
     Route: 065

REACTIONS (5)
  - Completed suicide [Fatal]
  - Cardiac arrest [Fatal]
  - Intentional overdose [Unknown]
  - Toxicity to various agents [Fatal]
  - Drug ineffective [Unknown]
